FAERS Safety Report 11875118 (Version 3)
Quarter: 2016Q2

REPORT INFORMATION
  Report Type: Report from Study
  Country: US (occurrence: US)
  Receive Date: 20151229
  Receipt Date: 20160628
  Transmission Date: 20160815
  Serious: Yes (Hospitalization)
  Sender: FDA-Public Use
  Company Number: US-BIOGEN-2015BI133272

PATIENT
  Age: 52 Year
  Sex: Female

DRUGS (1)
  1. TYSABRI [Suspect]
     Active Substance: NATALIZUMAB
     Indication: MULTIPLE SCLEROSIS
     Route: 042
     Dates: start: 20120706, end: 20150804

REACTIONS (3)
  - Pollakiuria [Not Recovered/Not Resolved]
  - Confusional state [Not Recovered/Not Resolved]
  - Breast cancer stage I [Recovered/Resolved]

NARRATIVE: CASE EVENT DATE: 201507
